FAERS Safety Report 25062543 (Version 1)
Quarter: 2025Q1

REPORT INFORMATION
  Report Type: Spontaneous
  Country: US (occurrence: US)
  Receive Date: 20250311
  Receipt Date: 20250311
  Transmission Date: 20250408
  Serious: No
  Sender: BIOGEN
  Company Number: US-BIOGEN-2025BI01303455

PATIENT
  Sex: Female

DRUGS (1)
  1. VUMERITY [Suspect]
     Active Substance: DIROXIMEL FUMARATE
     Indication: Multiple sclerosis
     Route: 050
     Dates: start: 20210907

REACTIONS (6)
  - Drug ineffective [Unknown]
  - Multiple sclerosis [Unknown]
  - Injury [Unknown]
  - Skin mass [Unknown]
  - Concussion [Unknown]
  - Fall [Recovered/Resolved]
